FAERS Safety Report 4513198-1 (Version None)
Quarter: 2004Q4

REPORT INFORMATION
  Report Type: 
  Country: None (occurrence: None)
  Receive Date: 20041130
  Receipt Date: 20041020
  Transmission Date: 20050328
  Serious: Yes (Hospitalization)
  Sender: FDA-Public Use
  Company Number: DE-MERCK-0410DEU00636

PATIENT
  Age: 77 Year
  Sex: Male

DRUGS (8)
  1. VIOXX [Suspect]
     Indication: LOCALISED OSTEOARTHRITIS
     Route: 048
     Dates: start: 20021210, end: 20040401
  2. VIOXX [Suspect]
     Route: 048
     Dates: start: 20040402, end: 20040101
  3. ISOSORBIDE DINITRATE [Concomitant]
     Route: 065
  4. ALLOPURINOL [Concomitant]
     Route: 065
  5. FUROSEMIDE [Concomitant]
     Route: 065
     Dates: end: 20040901
  6. MAGNESIUM ASPARTATE [Concomitant]
     Route: 065
  7. ASPIRIN [Concomitant]
     Route: 065
  8. ATORVASTATIN CALCIUM [Concomitant]
     Route: 065

REACTIONS (2)
  - CEREBROVASCULAR ACCIDENT [None]
  - THROMBOSIS [None]
